FAERS Safety Report 9759788 (Version 2)
Quarter: 2013Q4

REPORT INFORMATION
  Report Type: Spontaneous
  Country: US (occurrence: US)
  Receive Date: 20131216
  Receipt Date: 20131216
  Transmission Date: 20140711
  Serious: Yes (Hospitalization)
  Sender: FDA-Public Use
  Company Number: US-GILEAD-2010-0029045

PATIENT
  Age: 64 Year
  Sex: Female
  Weight: 58.06 kg

DRUGS (18)
  1. LETAIRIS [Suspect]
     Indication: PULMONARY ARTERIAL HYPERTENSION
     Route: 048
     Dates: start: 20091218
  2. LASIX [Concomitant]
  3. DIOVAN [Concomitant]
  4. DILT-CD [Concomitant]
  5. HYDRALAZINE [Concomitant]
  6. PROTONIX [Concomitant]
  7. PREDNISONE [Concomitant]
  8. LIPITOR [Concomitant]
  9. BENADRYL [Concomitant]
  10. POTASSIUM CHLORIDE [Concomitant]
  11. METFORMIN [Concomitant]
  12. ACYCLOVIR [Concomitant]
  13. ACTONEL [Concomitant]
  14. LEVOTHYROXINE [Concomitant]
  15. ALBUTEROL [Concomitant]
  16. CALCIUM +D [Concomitant]
  17. FERROUS SULFATE [Concomitant]
  18. GLIPIZIDE XL [Concomitant]

REACTIONS (2)
  - Rash [Not Recovered/Not Resolved]
  - Dyspnoea [Recovering/Resolving]
